FAERS Safety Report 6073101-2 (Version None)
Quarter: 2009Q1

REPORT INFORMATION
  Report Type: 
  Country: None (occurrence: None)
  Receive Date: 20090206
  Receipt Date: 20090121
  Transmission Date: 20090719
  Serious: Yes (Other)
  Sender: FDA-Public Use
  Company Number: PHHY2009GB02648

PATIENT
  Sex: Female

DRUGS (3)
  1. TEGRETOL [Suspect]
     Dosage: 400 MG, BID, ORAL
     Route: 048
  2. ERYTHROMYCIN [Concomitant]
  3. AZITHROMYCIN [Concomitant]

REACTIONS (2)
  - ATAXIA [None]
  - BALANCE DISORDER [None]
